FAERS Safety Report 6152077-3 (Version None)
Quarter: 2009Q2

REPORT INFORMATION
  Report Type: 
  Country: None (occurrence: None)
  Receive Date: 20090409
  Receipt Date: 20090409
  Transmission Date: 20091009
  Serious: Yes (Death, Hospitalization)
  Sender: FDA-Public Use
  Company Number: None

PATIENT
  Sex: Female

DRUGS (10)
  1. REVLIMID [Suspect]
     Indication: MULTIPLE MYELOMA
     Dosage: 10 MG DAILY X 21 DAYS ORALLY
     Route: 048
     Dates: start: 20090109, end: 20090322
  2. DEXAMETHASONE [Concomitant]
  3. GLIPIZIDE [Concomitant]
  4. METOPROLOL TARTRATE [Concomitant]
  5. TARTRATE [Concomitant]
  6. POTASSIUM CHLORIDE [Concomitant]
  7. NORTRIPTYLINE HCL [Concomitant]
  8. ACYCLOVIR [Concomitant]
  9. ALLOPURINOL [Concomitant]
  10. CLONAZEPAM [Concomitant]

REACTIONS (4)
  - DISEASE PROGRESSION [None]
  - HYPOXIA [None]
  - MENTAL STATUS CHANGES [None]
  - PANCYTOPENIA [None]
